FAERS Safety Report 11089568 (Version 1)
Quarter: 2015Q2

REPORT INFORMATION
  Report Type: Other
  Country: TR (occurrence: TR)
  Receive Date: 20150505
  Receipt Date: 20150505
  Transmission Date: 20150821
  Serious: Yes (Life-Threatening, Hospitalization)
  Sender: FDA-Public Use
  Company Number: TR-LUPIN PHARMACEUTICALS INC.-2015-01176

PATIENT
  Sex: Male

DRUGS (4)
  1. KETOPROFEN. [Suspect]
     Active Substance: KETOPROFEN
     Indication: PYREXIA
     Route: 065
  2. CEFPROZIL. [Suspect]
     Active Substance: CEFPROZIL
     Indication: DIARRHOEA
     Route: 065
  3. LITHIUM. [Suspect]
     Active Substance: LITHIUM
     Indication: BIPOLAR DISORDER
     Route: 065
  4. OLANZAPINE. [Concomitant]
     Active Substance: OLANZAPINE
     Indication: BIPOLAR DISORDER
     Route: 065

REACTIONS (1)
  - Acute kidney injury [Recovering/Resolving]
